FAERS Safety Report 6278486-X (Version None)
Quarter: 2009Q3

REPORT INFORMATION
  Report Type: 
  Country: None (occurrence: None)
  Receive Date: 20090722
  Receipt Date: 20090713
  Transmission Date: 20100115
  Serious: Yes (Death)
  Sender: FDA-Public Use
  Company Number: FR-MERCK-0907FRA00044

PATIENT
  Age: 53 Year
  Sex: Male

DRUGS (6)
  1. PRIMAXIN [Suspect]
     Route: 042
     Dates: start: 20080618, end: 20080708
  2. VANCOMYCIN [Suspect]
     Route: 042
     Dates: start: 20080618, end: 20080708
  3. CASPOFUNGIN ACETATE [Concomitant]
     Route: 042
     Dates: start: 20080627
  4. FLUCONAZOLE [Concomitant]
     Route: 042
     Dates: start: 20080610
  5. ZOPICLONE [Concomitant]
     Route: 065
  6. ALPRAZOLAM [Concomitant]
     Route: 065

REACTIONS (1)
  - TOXIC SKIN ERUPTION [None]
